FAERS Safety Report 9749030 (Version 1)
Quarter: 2013Q4

REPORT INFORMATION
  Report Type: Spontaneous
  Country: US (occurrence: US)
  Receive Date: 20131212
  Receipt Date: 20131212
  Transmission Date: 20140711
  Serious: No
  Sender: FDA-Public Use
  Company Number: US-INCYTE CORPORATION-2013IN002216

PATIENT
  Sex: 0

DRUGS (1)
  1. JAKAFI [Suspect]

REACTIONS (1)
  - No adverse event [Unknown]
